FAERS Safety Report 19067196 (Version 3)
Quarter: 2021Q2

REPORT INFORMATION
  Report Type: Spontaneous
  Country: GB (occurrence: GB)
  Receive Date: 20210329
  Receipt Date: 20210629
  Transmission Date: 20210717
  Serious: Yes (Hospitalization)
  Sender: FDA-Public Use
  Company Number: GB-TEVA-2021-GB-1895612

PATIENT
  Age: 77 Year
  Sex: Female

DRUGS (3)
  1. WARFARIN [Suspect]
     Active Substance: WARFARIN
     Indication: RENAL ARTERY THROMBOSIS
     Route: 065
  2. HEPARIN [Concomitant]
     Active Substance: HEPARIN SODIUM
     Indication: DRUG THERAPY
     Route: 042
  3. WARFARIN [Suspect]
     Active Substance: WARFARIN
     Dosage: DURING THE FASHIONING OF THE FISTULA, SHE WAS LOADED ON WARFARIN
     Route: 065

REACTIONS (3)
  - Skin necrosis [Unknown]
  - International normalised ratio increased [Unknown]
  - Haematochezia [Unknown]
